FAERS Safety Report 18324440 (Version 1)
Quarter: 2020Q3

REPORT INFORMATION
  Report Type: Spontaneous
  Country: US (occurrence: US)
  Receive Date: 20200929
  Receipt Date: 20200929
  Transmission Date: 20201103
  Serious: No
  Sender: FDA-Public Use
  Company Number: US-BAYER-2020-207843

PATIENT
  Age: 3 Decade
  Sex: Female

DRUGS (1)
  1. MIRENA [Suspect]
     Active Substance: LEVONORGESTREL
     Dosage: DAILY DOSE 20 ?G
     Route: 015
     Dates: start: 20200529

REACTIONS (1)
  - Drug ineffective [None]
